FAERS Safety Report 18116161 (Version 5)
Quarter: 2020Q4

REPORT INFORMATION
  Report Type: Report from Study
  Country: BR (occurrence: BR)
  Receive Date: 20200806
  Receipt Date: 20201126
  Transmission Date: 20210113
  Serious: Yes (Life-Threatening, Hospitalization)
  Sender: FDA-Public Use
  Company Number: BR-ROCHE-2652876

PATIENT
  Age: 68 Year
  Sex: Male
  Weight: 102 kg

DRUGS (55)
  1. INSULIN [Concomitant]
     Active Substance: INSULIN NOS
     Dates: start: 20200725, end: 20200725
  2. INSULIN [Concomitant]
     Active Substance: INSULIN NOS
     Dates: start: 20200729, end: 20200802
  3. REMDESIVIR. [Suspect]
     Active Substance: REMDESIVIR
     Indication: COVID-19 PNEUMONIA
     Dosage: MOST RECENT DOSE OF REMDESIVIR PRIOR TO ADVERSE EVENT ONSET 26/JUL/2020 AT 15:00 100 ML?MOST RECENT
     Route: 042
     Dates: start: 20200724
  4. CEFTRIAXONE. [Concomitant]
     Active Substance: CEFTRIAXONE
     Indication: COVID-19
     Dates: start: 20200722, end: 20200729
  5. PANTOPRAZOLE [Concomitant]
     Active Substance: PANTOPRAZOLE
     Dates: start: 20200722, end: 20200724
  6. PURAN [Concomitant]
     Active Substance: LEVOTHYROXINE SODIUM
     Dates: start: 20200727, end: 20200804
  7. NORADRENALINE [Concomitant]
     Active Substance: NOREPINEPHRINE
     Indication: HAEMODYNAMIC INSTABILITY
     Dates: start: 20200725, end: 20200725
  8. TAMIFLU [Concomitant]
     Active Substance: OSELTAMIVIR PHOSPHATE
     Indication: COVID-19
     Dates: start: 20200722, end: 20200724
  9. FENTANIL [Concomitant]
     Active Substance: FENTANYL
     Indication: COVID-19
     Dates: start: 20200725, end: 20200801
  10. ENCRISE [Concomitant]
     Dates: start: 20200803, end: 20200803
  11. LACTATED RINGERS SOLUTION [Concomitant]
     Active Substance: CALCIUM CHLORIDE\POTASSIUM CHLORIDE\SODIUM CHLORIDE\SODIUM LACTATE
     Dates: start: 20200727, end: 20200727
  12. SINVASTATINA [Concomitant]
     Active Substance: SIMVASTATIN
     Indication: DYSLIPIDAEMIA
     Dates: start: 20200722, end: 20200803
  13. NORADRENALINE [Concomitant]
     Active Substance: NOREPINEPHRINE
     Dates: start: 20200803, end: 20200803
  14. ROCURONIUM [Concomitant]
     Active Substance: ROCURONIUM BROMIDE
     Indication: COVID-19
     Dates: start: 20200725, end: 20200727
  15. METHYLPREDNISOLONE. [Concomitant]
     Active Substance: METHYLPREDNISOLONE
     Dates: start: 20200731, end: 20200801
  16. INSULIN [Concomitant]
     Active Substance: INSULIN NOS
     Indication: COVID-19
     Dates: start: 20200722, end: 20200722
  17. INSULIN [Concomitant]
     Active Substance: INSULIN NOS
     Dates: start: 20200727, end: 20200727
  18. INSULIN [Concomitant]
     Active Substance: INSULIN NOS
     Dates: start: 20200731, end: 20200731
  19. INSULIN [Concomitant]
     Active Substance: INSULIN NOS
     Dates: start: 20200803, end: 20200803
  20. INSULIN [Concomitant]
     Active Substance: INSULIN NOS
     Dates: start: 20200803, end: 20200803
  21. TOCILIZUMAB. [Suspect]
     Active Substance: TOCILIZUMAB
     Indication: COVID-19 PNEUMONIA
     Dosage: DATE OF MOST RECENT DOSE OF TOCILIZUMAB PRIOR TO ADVERSE EVENT ONSET 25/JUL/2020 AT 11:04
     Route: 042
     Dates: start: 20200724
  22. OMEPRAZOLE. [Concomitant]
     Active Substance: OMEPRAZOLE
     Dates: start: 20200725, end: 20200803
  23. SUCCINILCOLINA [Concomitant]
     Active Substance: SUCCINYLCHOLINE CHLORIDE
     Indication: COVID-19
     Dates: start: 20200725, end: 20200725
  24. MIDAZOLAM. [Concomitant]
     Active Substance: MIDAZOLAM
     Indication: SEDATION
     Dates: start: 20200725, end: 20200730
  25. ENOXAPARIN [Concomitant]
     Active Substance: ENOXAPARIN
     Dates: start: 20200728
  26. PURAN [Concomitant]
     Active Substance: LEVOTHYROXINE SODIUM
     Indication: HYPOTHYROIDISM
     Dates: start: 20200722, end: 20200725
  27. LIDOCAINE. [Concomitant]
     Active Substance: LIDOCAINE
     Indication: COVID-19
     Dates: start: 20200725, end: 20200725
  28. SCOPOLAMINE [Concomitant]
     Active Substance: SCOPOLAMINE
     Dates: start: 20200802, end: 20200804
  29. METHYLPREDNISOLONE. [Concomitant]
     Active Substance: METHYLPREDNISOLONE
     Dates: start: 20200803, end: 20200804
  30. VANCOMICINA [Concomitant]
     Active Substance: VANCOMYCIN
     Dates: start: 20200804, end: 20200804
  31. INSULIN [Concomitant]
     Active Substance: INSULIN NOS
     Dates: start: 20200802, end: 20200803
  32. FENTANIL [Concomitant]
     Active Substance: FENTANYL
     Dates: start: 20200803, end: 20200803
  33. INSULIN [Concomitant]
     Active Substance: INSULIN NOS
     Dates: start: 20200802, end: 20200802
  34. ENOXAPARIN [Concomitant]
     Active Substance: ENOXAPARIN
     Dates: start: 20200726, end: 20200803
  35. AZITHROMYCIN ANHYDROUS. [Concomitant]
     Active Substance: AZITHROMYCIN ANHYDROUS
     Indication: COVID-19
     Dates: start: 20200722, end: 20200727
  36. PLASIL [Concomitant]
     Active Substance: METOCLOPRAMIDE HYDROCHLORIDE
     Dates: start: 20200730, end: 20200804
  37. PRECEDEX [Concomitant]
     Active Substance: DEXMEDETOMIDINE HYDROCHLORIDE
     Indication: ANXIETY
     Dates: start: 20200722, end: 20200724
  38. METHYLPREDNISOLONE. [Concomitant]
     Active Substance: METHYLPREDNISOLONE
     Indication: COVID-19
     Dates: start: 20200727, end: 20200729
  39. VANCOMICINA [Concomitant]
     Active Substance: VANCOMYCIN
     Dates: start: 20200804, end: 20200804
  40. INSULIN [Concomitant]
     Active Substance: INSULIN NOS
     Dates: start: 20200729, end: 20200729
  41. INSULIN [Concomitant]
     Active Substance: INSULIN NOS
     Dates: start: 20200722, end: 20200723
  42. ENOXAPARIN [Concomitant]
     Active Substance: ENOXAPARIN
     Indication: DEEP VEIN THROMBOSIS
     Dates: start: 20200722, end: 20200726
  43. DIPYRONE [Concomitant]
     Active Substance: DIPYRONE
     Indication: COVID-19
     Dates: start: 20200722, end: 20200722
  44. PLASIL [Concomitant]
     Active Substance: METOCLOPRAMIDE HYDROCHLORIDE
     Indication: COVID-19
     Dates: start: 20200722
  45. AMIODARONE [Concomitant]
     Active Substance: AMIODARONE
     Indication: ATRIAL FIBRILLATION
     Dates: start: 20200725, end: 20200725
  46. MEROPENEM. [Concomitant]
     Active Substance: MEROPENEM
     Dates: start: 20200804, end: 20200804
  47. LACTATED RINGERS SOLUTION [Concomitant]
     Active Substance: CALCIUM CHLORIDE\POTASSIUM CHLORIDE\SODIUM CHLORIDE\SODIUM LACTATE
     Dates: start: 20200725, end: 20200725
  48. INSULIN [Concomitant]
     Active Substance: INSULIN NOS
     Dates: start: 20200727, end: 20200727
  49. INSULIN [Concomitant]
     Active Substance: INSULIN NOS
     Dates: start: 20200804, end: 20200804
  50. LIDOCAINE HYDROCHLORIDE. [Concomitant]
     Active Substance: LIDOCAINE HYDROCHLORIDE
     Indication: ENDOTRACHEAL INTUBATION
     Dates: start: 20200803, end: 20200803
  51. ENOXAPARIN [Concomitant]
     Active Substance: ENOXAPARIN
     Dates: start: 20200726, end: 20200726
  52. DEXAMETHASONE. [Concomitant]
     Active Substance: DEXAMETHASONE
     Indication: COVID-19
     Dates: start: 20200722, end: 20200727
  53. DIPYRONE [Concomitant]
     Active Substance: DIPYRONE
     Dates: start: 20200801, end: 20200801
  54. MIDAZOLAM. [Concomitant]
     Active Substance: MIDAZOLAM
     Dates: start: 20200803, end: 20200803
  55. FUROSEMIDA [Concomitant]
     Active Substance: FUROSEMIDE
     Indication: PRODUCT USED FOR UNKNOWN INDICATION
     Dates: start: 20200731, end: 20200731

REACTIONS (1)
  - Tracheobronchitis [Not Recovered/Not Resolved]

NARRATIVE: CASE EVENT DATE: 20200727
